FAERS Safety Report 7357495-3 (Version None)
Quarter: 2011Q1

REPORT INFORMATION
  Report Type: 
  Country: None (occurrence: None)
  Receive Date: 20110309
  Receipt Date: 20110209
  Transmission Date: 20110831
  Serious: Yes (Other)
  Sender: FDA-Public Use
  Company Number: 2011SE07877

PATIENT
  Age: 34 Year
  Sex: Female

DRUGS (1)
  1. FOSCAVIR [Suspect]
     Dosage: INTRAVENOUS DRIP
     Route: 041

REACTIONS (1)
  - TUBULOINTERSTITIAL NEPHRITIS [None]
